FAERS Safety Report 5552644-1 (Version None)
Quarter: 2007Q4

REPORT INFORMATION
  Report Type: 
  Country: None (occurrence: None)
  Receive Date: 20071203
  Receipt Date: 20071128
  Transmission Date: 20080405
  Serious: Yes (Hospitalization, Other)
  Sender: FDA-Public Use
  Company Number: CHPA2007US11351

PATIENT
  Age: 51 Year
  Sex: Female
  Weight: 41.7 kg

DRUGS (9)
  1. BENEFIBER CHEWABLE TABLET ORANGE (NCH)(GUA GUM) CHEWABLE TABLET [Suspect]
     Indication: GLUCOSE TOLERANCE IMPAIRED
     Dosage: 1-3 TABS 5 TIMES A DAY, ORAL, 3 DF, TID, ORAL
     Route: 048
     Dates: start: 20070708, end: 20070719
  2. BENEFIBER CHEWABLE TABLET ORANGE (NCH)(GUA GUM) CHEWABLE TABLET [Suspect]
     Indication: GLUCOSE TOLERANCE IMPAIRED
     Dosage: 1-3 TABS 5 TIMES A DAY, ORAL, 3 DF, TID, ORAL
     Route: 048
     Dates: end: 20070721
  3. NUTRITION SUPPLEMENTS(NUTRITION SUPPLEMENTS) [Suspect]
     Dosage: 1 TO 3 TABS 5 TIMES A DAY
  4. METFORMIN HCL [Concomitant]
  5. LIPITOR [Concomitant]
  6. CYMBALTA [Concomitant]
  7. ASPIRIN [Concomitant]
  8. VITAMIN D [Concomitant]
  9. DRUG THERAPY NOS (DRUG THERAPY NOS) [Concomitant]

REACTIONS (7)
  - ANOREXIA [None]
  - CHANGE OF BOWEL HABIT [None]
  - CONSTIPATION [None]
  - ILEUS PARALYTIC [None]
  - INTESTINAL OBSTRUCTION [None]
  - ORAL INTAKE REDUCED [None]
  - PAIN [None]
